FAERS Safety Report 20195579 (Version 1)
Quarter: 2021Q4

REPORT INFORMATION
  Report Type: Spontaneous
  Country: US (occurrence: None)
  Receive Date: 20211216
  Receipt Date: 20211216
  Transmission Date: 20220303
  Serious: Yes (Hospitalization, Disabling, Other)
  Sender: FDA-Public Use
  Company Number: None

PATIENT
  Age: 31 Year
  Sex: Male
  Weight: 78.75 kg

DRUGS (1)
  1. MENS ROGAINE EXTRA STRENGTH [Suspect]
     Active Substance: MINOXIDIL
     Indication: Alopecia
     Dates: start: 20210802, end: 20211001

REACTIONS (13)
  - Periorbital swelling [None]
  - Dark circles under eyes [None]
  - Obsessive thoughts [None]
  - Suicidal ideation [None]
  - Sleep apnoea syndrome [None]
  - Feeling abnormal [None]
  - Depression [None]
  - Hair growth abnormal [None]
  - Alopecia [None]
  - Skin wrinkling [None]
  - Skin swelling [None]
  - Skin discolouration [None]
  - Facial paralysis [None]

NARRATIVE: CASE EVENT DATE: 20211208
